FAERS Safety Report 8370663-7 (Version None)
Quarter: 2012Q2

REPORT INFORMATION
  Report Type: 
  Country: None (occurrence: None)
  Receive Date: 20120518
  Receipt Date: 20120508
  Transmission Date: 20120825
  Serious: Yes (Disabling)
  Sender: FDA-Public Use
  Company Number: US-JNJFOC-20120402368

PATIENT
  Sex: Male
  Weight: 133.81 kg

DRUGS (5)
  1. ALBUTEROL [Suspect]
     Indication: ASTHMA
     Route: 055
     Dates: start: 20120220, end: 20120310
  2. PREDNISONE [Suspect]
     Indication: MALAISE
     Route: 048
     Dates: start: 20120301, end: 20120310
  3. ADVAIR DISKUS 100/50 [Suspect]
     Indication: ASTHMA
     Route: 055
     Dates: start: 20120220, end: 20120310
  4. STELARA [Suspect]
     Indication: HIDRADENITIS
     Route: 058
     Dates: start: 20120301
  5. LEVAQUIN [Suspect]
     Indication: MALAISE
     Route: 048
     Dates: start: 20120303, end: 20120310

REACTIONS (3)
  - TRANSIENT GLOBAL AMNESIA [None]
  - TRANSIENT ISCHAEMIC ATTACK [None]
  - OFF LABEL USE [None]
